FAERS Safety Report 9169645 (Version 1)
Quarter: 2013Q1

REPORT INFORMATION
  Report Type: Spontaneous
  Country: US (occurrence: US)
  Receive Date: 20130318
  Receipt Date: 20130318
  Transmission Date: 20140127
  Serious: Yes (Other)
  Sender: FDA-Public Use
  Company Number: US-PFIZER INC-2013086810

PATIENT
  Age: 25 Year
  Sex: Female
  Weight: 83.9 kg

DRUGS (1)
  1. ZITHROMAX [Suspect]
     Indication: PNEUMONIA
     Dosage: UNK
     Dates: start: 20130304, end: 20130308

REACTIONS (6)
  - Supraventricular tachycardia [Not Recovered/Not Resolved]
  - Heart rate irregular [Not Recovered/Not Resolved]
  - Dyspnoea [Not Recovered/Not Resolved]
  - Chest discomfort [Not Recovered/Not Resolved]
  - Hypokinesia [Not Recovered/Not Resolved]
  - Drug ineffective [Recovered/Resolved]
